FAERS Safety Report 24344896 (Version 2)
Quarter: 2024Q4

REPORT INFORMATION
  Report Type: Report from Study
  Country: US (occurrence: US)
  Receive Date: 20240920
  Receipt Date: 20241010
  Transmission Date: 20250114
  Serious: Yes (Death, Hospitalization)
  Sender: ARDELYX
  Company Number: US-ARDELYX-2024ARDX006875

PATIENT
  Age: 62 Year
  Sex: Female

DRUGS (4)
  1. XPHOZAH [Suspect]
     Active Substance: TENAPANOR HYDROCHLORIDE
     Indication: Chronic kidney disease
     Dosage: 30 MILLIGRAM, BID
     Route: 048
  2. XPHOZAH [Suspect]
     Active Substance: TENAPANOR HYDROCHLORIDE
     Indication: End stage renal disease
  3. CLONIDINE [Concomitant]
     Active Substance: CLONIDINE
     Indication: Hypertension
     Route: 065
  4. SENSIPAR [Concomitant]
     Active Substance: CINACALCET HYDROCHLORIDE
     Indication: Hyperphosphataemia
     Route: 065

REACTIONS (2)
  - Cardiac arrest [Fatal]
  - Hypotension [Unknown]

NARRATIVE: CASE EVENT DATE: 20240831
